FAERS Safety Report 5220124-9 (Version None)
Quarter: 2007Q1

REPORT INFORMATION
  Report Type: 
  Country: None (occurrence: None)
  Receive Date: 20070125
  Receipt Date: 20070125
  Transmission Date: 20070707
  Serious: Yes (Other)
  Sender: FDA-Public Use
  Company Number: None

PATIENT
  Age: 29 Year
  Sex: Female
  Weight: 118 kg

DRUGS (1)
  1. POSACONAZOLE [Suspect]
     Indication: FUNGAL SKIN INFECTION
     Dosage: 200MG QID PO
     Route: 048
     Dates: start: 20061213, end: 20061215

REACTIONS (1)
  - OEDEMA PERIPHERAL [None]
